FAERS Safety Report 4483444-1 (Version None)
Quarter: 2004Q4

REPORT INFORMATION
  Report Type: 
  Country: None (occurrence: None)
  Receive Date: 20041020
  Receipt Date: 20041007
  Transmission Date: 20050328
  Serious: Yes (Hospitalization)
  Sender: FDA-Public Use
  Company Number: SP00350

PATIENT
  Age: 9 Year
  Sex: Female
  Weight: 38 kg

DRUGS (5)
  1. COLAZAL [Suspect]
     Indication: COLITIS ULCERATIVE
     Dosage: 1.5 G/DAILY, ORAL
     Route: 048
     Dates: start: 20020601
  2. BACTRIM [Suspect]
     Dosage: 2.5 TSP/DAILY, ORAL
     Route: 048
     Dates: end: 20040901
  3. MERCAPTOPURINE [Suspect]
     Dosage: 37.5 MG/DAILY, ORAL
     Route: 048
     Dates: end: 20040901
  4. FLORINEF [Concomitant]
  5. NEXIUM [Concomitant]

REACTIONS (2)
  - DRUG INTERACTION [None]
  - THROMBOCYTOPENIA [None]
